FAERS Safety Report 18981705 (Version 1)
Quarter: 2021Q1

REPORT INFORMATION
  Report Type: Spontaneous
  Country: US (occurrence: US)
  Receive Date: 20210308
  Receipt Date: 20210308
  Transmission Date: 20210420
  Serious: No
  Sender: FDA-Public Use
  Company Number: US-PFIZER INC-2021144315

PATIENT
  Sex: Male

DRUGS (1)
  1. COPPER CHLORIDE [Suspect]
     Active Substance: CUPRIC CHLORIDE
     Dosage: UNK

REACTIONS (1)
  - Administration site extravasation [Unknown]
